FAERS Safety Report 11889118 (Version 1)
Quarter: 2016Q1

REPORT INFORMATION
  Report Type: Spontaneous
  Country: AR (occurrence: AR)
  Receive Date: 20160105
  Receipt Date: 20160105
  Transmission Date: 20160526
  Serious: Yes (Other)
  Sender: FDA-Public Use
  Company Number: PHHY2015AR172110

PATIENT
  Sex: Female

DRUGS (1)
  1. SEEBRI BREEZHALER [Suspect]
     Active Substance: GLYCOPYRROLATE
     Indication: CHRONIC OBSTRUCTIVE PULMONARY DISEASE
     Dosage: 2 DF, QD
     Route: 065

REACTIONS (7)
  - Bronchial disorder [Unknown]
  - Pyrexia [Unknown]
  - Headache [Unknown]
  - Aneurysm [Unknown]
  - Coagulopathy [Unknown]
  - Bronchospasm [Unknown]
  - Productive cough [Unknown]

NARRATIVE: CASE EVENT DATE: 2014
